FAERS Safety Report 7716227-7 (Version None)
Quarter: 2011Q3

REPORT INFORMATION
  Report Type: 
  Country: None (occurrence: None)
  Receive Date: 20110822
  Receipt Date: 20110809
  Transmission Date: 20111222
  Serious: Yes (Hospitalization)
  Sender: FDA-Public Use
  Company Number: AUR-APL-2011-04660

PATIENT
  Age: 82 Year
  Sex: Female

DRUGS (4)
  1. METFORMIN HCL [Suspect]
     Indication: PRODUCT USED FOR UNKNOWN INDICATION
     Dosage: 3 GM (1 GM, 3 IN 1 D), ORAL
     Route: 048
     Dates: end: 20110613
  2. LYRICA [Suspect]
     Indication: PRODUCT USED FOR UNKNOWN INDICATION
     Dosage: 150 MG (75 MG, 2 IN 1 D), ORAL
     Route: 048
     Dates: start: 20110614
  3. NOVOMIX (INSULIN ASPART) [Suspect]
     Indication: PRODUCT USED FOR UNKNOWN INDICATION
     Dosage: 42 IU (14 IU, 3IN 1 D), SUBCUTANEOUS
     Route: 058
     Dates: start: 20110614
  4. ACETAMINOPHEN [Suspect]
     Indication: PRODUCT USED FOR UNKNOWN INDICATION
     Dosage: 3 GM (1 GM, 3 IN 1 D), ORAL
     Route: 048
     Dates: start: 20110613

REACTIONS (4)
  - DEPRESSED LEVEL OF CONSCIOUSNESS [None]
  - HYPERNATRAEMIA [None]
  - RENAL FAILURE ACUTE [None]
  - SOMNOLENCE [None]
